FAERS Safety Report 17245543 (Version 1)
Quarter: 2020Q1

REPORT INFORMATION
  Report Type: Spontaneous
  Country: US (occurrence: US)
  Receive Date: 20200108
  Receipt Date: 20200108
  Transmission Date: 20200409
  Serious: No
  Sender: FDA-Public Use
  Company Number: US-TEVA-2020-US-1165540

PATIENT
  Sex: Female

DRUGS (1)
  1. BUDESONIDE 3MG [Suspect]
     Active Substance: BUDESONIDE
     Indication: DIARRHOEA
     Route: 065
     Dates: start: 201912

REACTIONS (1)
  - Drug ineffective [Unknown]
